FAERS Safety Report 6348424-X (Version None)
Quarter: 2009Q3

REPORT INFORMATION
  Report Type: 
  Country: None (occurrence: None)
  Receive Date: 20090911
  Receipt Date: 20090903
  Transmission Date: 20100115
  Serious: Yes (Hospitalization)
  Sender: FDA-Public Use
  Company Number: US-BIOGENIDEC-2009BI028510

PATIENT
  Age: 37 Year
  Sex: Female
  Weight: 101 kg

DRUGS (3)
  1. TYSABRI [Suspect]
     Indication: MULTIPLE SCLEROSIS
     Route: 042
     Dates: start: 20080301
  2. DIOVAN [Concomitant]
     Indication: HYPERTENSION
     Dates: start: 20070101, end: 20090710
  3. NAPROXEN [Concomitant]
     Indication: ARTHRITIS
     Dates: start: 20070101, end: 20090710

REACTIONS (5)
  - ANKLE FRACTURE [None]
  - BLOOD PRESSURE INCREASED [None]
  - FLUID RETENTION [None]
  - RENAL FAILURE [None]
  - URINARY TRACT INFECTION [None]
